FAERS Safety Report 21090200 (Version 1)
Quarter: 2022Q3

REPORT INFORMATION
  Report Type: Spontaneous
  Country: PL (occurrence: PL)
  Receive Date: 20220715
  Receipt Date: 20220715
  Transmission Date: 20221026
  Serious: Yes (Life-Threatening, Other)
  Sender: FDA-Public Use
  Company Number: PL-SA-2020SA070173

PATIENT
  Age: 58 Year
  Sex: Female

DRUGS (6)
  1. DILTIAZEM HYDROCHLORIDE [Suspect]
     Active Substance: DILTIAZEM HYDROCHLORIDE
     Indication: Cardiovascular disorder
     Route: 065
  2. SERTINDOLE [Suspect]
     Active Substance: SERTINDOLE
     Indication: Psychotic disorder
     Route: 065
  3. ASPIRIN [Concomitant]
     Active Substance: ASPIRIN
     Indication: Product used for unknown indication
  4. RAMIPRIL [Concomitant]
     Active Substance: RAMIPRIL
     Indication: Product used for unknown indication
  5. TRIMETAZIDINE [Concomitant]
     Active Substance: TRIMETAZIDINE
     Indication: Product used for unknown indication
  6. IVABRADINE [Concomitant]
     Active Substance: IVABRADINE
     Indication: Product used for unknown indication

REACTIONS (3)
  - Ventricular arrhythmia [Unknown]
  - Contraindicated product administered [Unknown]
  - Drug interaction [Unknown]
